FAERS Safety Report 5381174-5 (Version None)
Quarter: 2007Q3

REPORT INFORMATION
  Report Type: 
  Country: None (occurrence: None)
  Receive Date: 20070706
  Receipt Date: 20070624
  Transmission Date: 20080115
  Serious: Yes (Other)
  Sender: FDA-Public Use
  Company Number: US-PFIZER INC-2007052900

PATIENT
  Sex: Male
  Weight: 87.1 kg

DRUGS (3)
  1. CHANTIX [Suspect]
     Indication: EX-SMOKER
     Dosage: TEXT:EVERY DAY
  2. MOTRIN [Concomitant]
  3. TRAMADOL HCL [Concomitant]

REACTIONS (2)
  - NICOTINE DEPENDENCE [None]
  - SMOKER [None]
